FAERS Safety Report 8367857-3 (Version None)
Quarter: 2012Q2

REPORT INFORMATION
  Report Type: 
  Country: None (occurrence: None)
  Receive Date: 20120517
  Receipt Date: 20120509
  Transmission Date: 20120825
  Serious: Yes (Other)
  Sender: FDA-Public Use
  Company Number: PHHY2012US041090

PATIENT
  Age: 42 Year
  Sex: Male

DRUGS (5)
  1. FLUDARABINE PHOSPHATE [Concomitant]
     Dosage: 160 MG/M2
  2. BUSULFAN [Concomitant]
     Dosage: 260 MG/M2
  3. ALEMTUZUMAB [Concomitant]
     Dosage: 80 MG, UNK
  4. CYCLOSPORINE [Suspect]
     Indication: PROPHYLAXIS AGAINST GRAFT VERSUS HOST DISEASE
     Dosage: UNK UKN, UNK
  5. MYCOPHENOLATE MOFETIL [Concomitant]
     Indication: PROPHYLAXIS AGAINST GRAFT VERSUS HOST DISEASE
     Dosage: 1000 MG, BID

REACTIONS (5)
  - CHIMERISM [None]
  - RENAL FAILURE [None]
  - HUMAN HERPESVIRUS 6 INFECTION [None]
  - CYTOMEGALOVIRUS INFECTION [None]
  - WHITE BLOOD CELL COUNT DECREASED [None]
